FAERS Safety Report 5007547-8 (Version None)
Quarter: 2006Q2

REPORT INFORMATION
  Report Type: 
  Country: None (occurrence: None)
  Receive Date: 20060522
  Receipt Date: 20060512
  Transmission Date: 20061013
  Serious: Yes (Hospitalization)
  Sender: FDA-Public Use
  Company Number: AT-ROCHE-447521

PATIENT
  Age: 70 Year
  Sex: Male

DRUGS (8)
  1. MYCOPHENOLATE MOFETIL [Suspect]
     Route: 065
     Dates: start: 20050901, end: 20050929
  2. MYCOPHENOLATE MOFETIL [Suspect]
     Route: 065
     Dates: start: 20050930
  3. CYCLOSPORINE [Concomitant]
  4. ASPIRIN [Concomitant]
     Dosage: LOW-DOSE
  5. FLUVASTATINE [Concomitant]
  6. FUROSEMIDE [Concomitant]
  7. XIPAMIDE [Concomitant]
  8. METOPROLOL TARTRATE [Concomitant]

REACTIONS (4)
  - ARTHRITIS [None]
  - BLOOD ALKALINE PHOSPHATASE INCREASED [None]
  - GAMMA-GLUTAMYLTRANSFERASE INCREASED [None]
  - INFLAMMATION [None]
